FAERS Safety Report 9760226 (Version 2)
Quarter: 2015Q3

REPORT INFORMATION
  Report Type: Spontaneous
  Country: US (occurrence: US)
  Receive Date: 20131216
  Receipt Date: 20150806
  Transmission Date: 20151125
  Serious: No
  Sender: FDA-Public Use
  Company Number: US-GILEAD-2010-0028330

PATIENT
  Age: 67 Year
  Sex: Female
  Weight: 58.06 kg

DRUGS (13)
  1. ADVAIR 250-50 DISKUS [Concomitant]
  2. FISH OIL [Concomitant]
     Active Substance: FISH OIL
  3. COQ [Concomitant]
  4. VITAMIN C [Concomitant]
     Active Substance: ASCORBIC ACID
  5. RESTASIS [Concomitant]
     Active Substance: CYCLOSPORINE
  6. ALPHAGAN P [Concomitant]
     Active Substance: BRIMONIDINE TARTRATE
  7. LIPITOR [Concomitant]
     Active Substance: ATORVASTATIN CALCIUM
  8. DIOVAN [Concomitant]
     Active Substance: VALSARTAN
  9. PROVENTIL [Concomitant]
     Active Substance: ALBUTEROL
  10. LETAIRIS [Suspect]
     Active Substance: AMBRISENTAN
     Indication: PULMONARY ARTERIAL HYPERTENSION
     Route: 048
     Dates: start: 20100113
  11. PREDNISONE. [Concomitant]
     Active Substance: PREDNISONE
  12. DAILY MULTIVITAMIN [Concomitant]
     Active Substance: VITAMINS
  13. CALCIUM 600 W/D [Concomitant]

REACTIONS (1)
  - Red blood cell count decreased [Unknown]
